FAERS Safety Report 5346260-4 (Version None)
Quarter: 2007Q2

REPORT INFORMATION
  Report Type: 
  Country: None (occurrence: None)
  Receive Date: 20070605
  Receipt Date: 20070526
  Transmission Date: 20071010
  Serious: Yes (Hospitalization)
  Sender: FDA-Public Use
  Company Number: BR-ABBOTT-06P-020-0348625-00

PATIENT
  Sex: Female
  Weight: 53 kg

DRUGS (9)
  1. HUMIRA [Suspect]
     Indication: RHEUMATOID ARTHRITIS
     Dates: start: 20060807, end: 20061005
  2. METHOTREXATE SODIUM [Concomitant]
     Indication: RHEUMATOID ARTHRITIS
     Dates: start: 19980101, end: 20060901
  3. CLONAZEPAM [Concomitant]
     Indication: SEDATION
     Route: 048
     Dates: start: 20040101
  4. PREDNISONE TAB [Concomitant]
     Indication: RHEUMATOID ARTHRITIS
     Route: 048
     Dates: start: 19960101
  5. OSCAL [Concomitant]
     Indication: DRUG USE FOR UNKNOWN INDICATION
  6. OSTEOFORM [Concomitant]
     Indication: DRUG USE FOR UNKNOWN INDICATION
  7. ARCOXIA [Concomitant]
     Indication: DRUG USE FOR UNKNOWN INDICATION
  8. FLUOXETINE [Concomitant]
     Indication: DRUG USE FOR UNKNOWN INDICATION
  9. NEOSAL-N [Concomitant]
     Indication: DRUG USE FOR UNKNOWN INDICATION

REACTIONS (5)
  - BLOOD CHOLESTEROL INCREASED [None]
  - BLOOD GLUCOSE INCREASED [None]
  - GASTRIC DISORDER [None]
  - PNEUMONITIS [None]
  - TACHYPNOEA [None]
